FAERS Safety Report 10761885 (Version 2)
Quarter: 2015Q1

REPORT INFORMATION
  Report Type: Spontaneous
  Country: CA (occurrence: CA)
  Receive Date: 20150204
  Receipt Date: 20150219
  Transmission Date: 20150721
  Serious: Yes (Other)
  Sender: FDA-Public Use
  Company Number: CA-SA-2015SA011560

PATIENT
  Age: 61 Year
  Sex: Male

DRUGS (14)
  1. TAXOTERE [Suspect]
     Active Substance: DOCETAXEL
     Indication: PROSTATE CANCER
     Route: 042
  2. MACROGOL [Concomitant]
     Active Substance: POLYETHYLENE GLYCOLS
  3. MAGNESIUM OXIDE. [Concomitant]
     Active Substance: MAGNESIUM OXIDE
  4. ASA [Concomitant]
     Active Substance: ASPIRIN
  5. HALDOL [Concomitant]
     Active Substance: HALOPERIDOL
  6. NAPROXEN. [Concomitant]
     Active Substance: NAPROXEN
  7. DILAUDID [Concomitant]
     Active Substance: HYDROMORPHONE HYDROCHLORIDE
  8. TAXOTERE [Suspect]
     Active Substance: DOCETAXEL
     Indication: PROSTATE CANCER
     Dosage: LOT : D2C956(80 MG)?         D3A208(20 MG)
     Route: 042
     Dates: start: 20141112
  9. SENOKOT [Concomitant]
     Active Substance: SENNOSIDES
  10. METOPROLOL [Concomitant]
     Active Substance: METOPROLOL
  11. TAXOTERE [Suspect]
     Active Substance: DOCETAXEL
     Indication: PROSTATE CANCER
     Dosage: LOT : D2C956(80 MG)?         D3A208(20 MG)
     Route: 042
     Dates: start: 20141112
  12. HYDROMORPH CONTIN [Concomitant]
     Active Substance: HYDROMORPHONE
  13. DIAMICRON MR [Concomitant]
     Active Substance: GLICLAZIDE
  14. VITAMIN B12 [Concomitant]
     Active Substance: CYANOCOBALAMIN

REACTIONS (3)
  - Drug ineffective [Unknown]
  - Incorrect dose administered [Unknown]
  - Wrong technique in drug usage process [Unknown]

NARRATIVE: CASE EVENT DATE: 20141112
